FAERS Safety Report 5862162-9 (Version None)
Quarter: 2008Q3

REPORT INFORMATION
  Report Type: 
  Country: None (occurrence: None)
  Receive Date: 20080828
  Receipt Date: 20071126
  Transmission Date: 20090109
  Serious: No
  Sender: FDA-Public Use
  Company Number: A0695700A

PATIENT
  Age: 84 Year
  Sex: Female

DRUGS (2)
  1. ACYCLOVIR [Suspect]
     Route: 048
     Dates: start: 20071031, end: 20071107
  2. NO CONCURRENT MEDICATION [Concomitant]

REACTIONS (1)
  - DYSPNOEA [None]
